FAERS Safety Report 15980238 (Version 1)
Quarter: 2019Q1

REPORT INFORMATION
  Report Type: Spontaneous
  Country: DE (occurrence: DE)
  Receive Date: 20190219
  Receipt Date: 20190219
  Transmission Date: 20190418
  Serious: Yes (Other)
  Sender: FDA-Public Use
  Company Number: PHHY2019DE033021

PATIENT
  Sex: Female
  Weight: 3.56 kg

DRUGS (1)
  1. FLUOXETINE [Suspect]
     Active Substance: FLUOXETINE HYDROCHLORIDE
     Indication: FOETAL EXPOSURE DURING PREGNANCY
     Dosage: MATERNAL DOSE/ 10 MG/DL
     Route: 064

REACTIONS (4)
  - Foetal exposure during pregnancy [Unknown]
  - Subdural hygroma [Unknown]
  - Vomiting [Unknown]
  - Seizure [Unknown]
